FAERS Safety Report 18451220 (Version 1)
Quarter: 2020Q4

REPORT INFORMATION
  Report Type: Other
  Country: CA (occurrence: CA)
  Receive Date: 20201030
  Receipt Date: 20201030
  Transmission Date: 20210114
  Serious: Yes (Hospitalization)
  Sender: FDA-Public Use
  Company Number: CA-CELLTRION INC.-2020CA029750

PATIENT

DRUGS (9)
  1. POTASSIUM [Concomitant]
     Active Substance: POTASSIUM
  2. PREDNISONE. [Concomitant]
     Active Substance: PREDNISONE
  3. AZATHIOPRINE. [Concomitant]
     Active Substance: AZATHIOPRINE
  4. RISEDRONATE [Concomitant]
     Active Substance: RISEDRONATE SODIUM
  5. LANTUS [Concomitant]
     Active Substance: INSULIN GLARGINE
  6. CALCIUM [Concomitant]
     Active Substance: CALCIUM
  7. RITUXIMAB (UNKNOWN) [Suspect]
     Active Substance: RITUXIMAB
     Indication: GRANULOMATOSIS WITH POLYANGIITIS
     Route: 065
  8. ERGOCALCIFEROL. [Concomitant]
     Active Substance: ERGOCALCIFEROL
  9. HYDROCHLOROTHIAZIDE. [Concomitant]
     Active Substance: HYDROCHLOROTHIAZIDE

REACTIONS (3)
  - Renal disorder [Unknown]
  - Blood creatinine increased [Unknown]
  - Urinary tract infection [Unknown]
